FAERS Safety Report 5227964-0 (Version None)
Quarter: 2007Q1

REPORT INFORMATION
  Report Type: 
  Country: None (occurrence: None)
  Receive Date: 20061201
  Receipt Date: 20051214
  Transmission Date: 20070707
  Serious: Yes (Hospitalization)
  Sender: FDA-Public Use
  Company Number: 2005-125649-NL

PATIENT
  Age: 23 Year
  Sex: Female
  Weight: 108.9 kg

DRUGS (2)
  1. NUVARING [Suspect]
     Dosage: VAGINAL
     Route: 067
     Dates: start: 20031126, end: 20040808
  2. ADVAIR DISKUS 100/50 [Concomitant]

REACTIONS (4)
  - COMPLICATION OF DEVICE INSERTION [None]
  - MULTIPLE PREGNANCY [None]
  - VULVOVAGINAL DISCOMFORT [None]
  - VULVOVAGINAL MYCOTIC INFECTION [None]
